FAERS Safety Report 8517180-9 (Version None)
Quarter: 2012Q2

REPORT INFORMATION
  Report Type: 
  Country: None (occurrence: None)
  Receive Date: 20120406
  Receipt Date: 20101028
  Transmission Date: 20120825
  Serious: Yes (Hospitalization)
  Sender: FDA-Public Use
  Company Number: PHHY2010US56807

PATIENT
  Age: 34 Year
  Sex: Male

DRUGS (5)
  1. NEURONTIN [Concomitant]
  2. AMITRIPTYLINE HYDROCHLORIDE [Concomitant]
  3. METHADONE HCL [Concomitant]
  4. TASIGNA [Suspect]
     Indication: CHRONIC MYELOID LEUKAEMIA
     Dosage: 400 MG, BID, ORAL
     Route: 048
     Dates: start: 20100709, end: 20100727
  5. GLEEVEC [Concomitant]

REACTIONS (7)
  - CHRONIC MYELOID LEUKAEMIA [None]
  - NEUTROPHIL COUNT DECREASED [None]
  - THROMBOCYTOPENIA [None]
  - BLAST CRISIS IN MYELOGENOUS LEUKAEMIA [None]
  - CHRONIC MYELOID LEUKAEMIA TRANSFORMATION [None]
  - BLAST CELLS PRESENT [None]
  - ACUTE MYELOID LEUKAEMIA [None]
